FAERS Safety Report 4500688-0 (Version None)
Quarter: 2004Q4

REPORT INFORMATION
  Report Type: 
  Country: None (occurrence: None)
  Receive Date: 20041115
  Receipt Date: 20041104
  Transmission Date: 20050328
  Serious: Yes (Death, Hospitalization)
  Sender: FDA-Public Use
  Company Number: FR-NOVOPROD-240367

PATIENT
  Age: 73 Year
  Sex: Male

DRUGS (3)
  1. NOVONORM [Suspect]
     Indication: DIABETES MELLITUS NON-INSULIN-DEPENDENT
     Dosage: 2 MG, TID
     Route: 048
  2. GLUCOPHAGE ^UNS^ [Concomitant]
  3. GLUCOR [Concomitant]
     Dosage: 100 MG, TID

REACTIONS (2)
  - ABDOMINAL PAIN [None]
  - HYPOGLYCAEMIA [None]
